FAERS Safety Report 8612221-2 (Version None)
Quarter: 2012Q3

REPORT INFORMATION
  Report Type: 
  Country: None (occurrence: None)
  Receive Date: 20120822
  Receipt Date: 20120817
  Transmission Date: 20120928
  Serious: Yes (Life-Threatening, Hospitalization)
  Sender: FDA-Public Use
  Company Number: US-JNJFOC-20120803743

PATIENT
  Sex: Male
  Weight: 94.8 kg

DRUGS (3)
  1. ALEVE [Concomitant]
  2. STELARA [Suspect]
     Indication: PSORIASIS
     Route: 058
     Dates: start: 20101001
  3. PRILOSEC [Concomitant]

REACTIONS (1)
  - GUILLAIN-BARRE SYNDROME [None]
